FAERS Safety Report 6976704-3 (Version None)
Quarter: 2010Q3

REPORT INFORMATION
  Report Type: 
  Country: None (occurrence: None)
  Receive Date: 20100910
  Receipt Date: 20090428
  Transmission Date: 20110219
  Serious: No
  Sender: FDA-Public Use
  Company Number: US-WYE-H09145709

PATIENT
  Sex: Female
  Weight: 54.48 kg

DRUGS (2)
  1. PRISTIQ [Suspect]
     Indication: STRESS
     Dosage: UNKNOWN
  2. PRISTIQ [Suspect]
     Route: 048
     Dates: start: 20090427, end: 20090427

REACTIONS (3)
  - FEELING JITTERY [None]
  - INSOMNIA [None]
  - NAUSEA [None]
